FAERS Safety Report 21347344 (Version 3)
Quarter: 2022Q4

REPORT INFORMATION
  Report Type: Report from Study
  Country: CO (occurrence: CO)
  Receive Date: 20220919
  Receipt Date: 20221013
  Transmission Date: 20230112
  Serious: No
  Sender: FDA-Public Use
  Company Number: CO-NOVARTISPH-NVSC2022CO210416

PATIENT
  Sex: Male
  Weight: 90 kg

DRUGS (2)
  1. COSENTYX [Suspect]
     Active Substance: SECUKINUMAB
     Indication: Ankylosing spondylitis
     Dosage: 150 MG, QMO (APPROXIMATELY 4 YEARS  AND A HALF  AGO (EXACT  DATE NOT  INDICATED))
     Route: 058
  2. METFORMIN [Concomitant]
     Active Substance: METFORMIN HYDROCHLORIDE
     Indication: Diabetes mellitus
     Dosage: 500 MG (24HRS, 15 YEARS AGO)
     Route: 048

REACTIONS (2)
  - Dyskinesia [Unknown]
  - Drug ineffective [Unknown]
